FAERS Safety Report 9014581 (Version 1)
Quarter: 2013Q1

REPORT INFORMATION
  Report Type: Spontaneous
  Country: US (occurrence: US)
  Receive Date: 20130115
  Receipt Date: 20130115
  Transmission Date: 20140127
  Serious: No
  Sender: FDA-Public Use
  Company Number: US-NOVEN-12US005714

PATIENT
  Age: 84 Year
  Sex: Male

DRUGS (2)
  1. FENTANYL [Suspect]
     Indication: BACK PAIN
     Dosage: 50 UG/HR Q 72 HOURS
     Route: 062
     Dates: start: 201211
  2. FENTANYL [Suspect]
     Dosage: 50 UG/HR Q 72 HOURS
     Route: 062
     Dates: start: 20121020, end: 201211

REACTIONS (1)
  - Inadequate analgesia [Not Recovered/Not Resolved]
